FAERS Safety Report 5363819-9 (Version None)
Quarter: 2007Q2

REPORT INFORMATION
  Report Type: 
  Country: None (occurrence: None)
  Receive Date: 20070620
  Receipt Date: 20070619
  Transmission Date: 20071010
  Serious: Yes (Hospitalization)
  Sender: FDA-Public Use
  Company Number: A0657088A

PATIENT
  Age: 69 Year
  Sex: Male

DRUGS (8)
  1. ALLI [Suspect]
     Route: 048
     Dates: start: 20070615, end: 20070616
  2. ASPIRIN [Concomitant]
  3. BYETTA [Concomitant]
  4. MAVIK [Concomitant]
  5. NOVOLIN N [Concomitant]
  6. OMEGA FISH OIL [Concomitant]
  7. COREG [Concomitant]
  8. MULTIPLE VITAMIN [Concomitant]

REACTIONS (4)
  - BLOOD PRESSURE INCREASED [None]
  - MALAISE [None]
  - PALPITATIONS [None]
  - TREMOR [None]
